FAERS Safety Report 9585878 (Version 1)
Quarter: 2013Q3

REPORT INFORMATION
  Report Type: Spontaneous
  Country: FR (occurrence: None)
  Receive Date: 20130926
  Receipt Date: 20130926
  Transmission Date: 20140515
  Serious: Yes (Hospitalization)
  Sender: FDA-Public Use
  Company Number: 2012-01195

PATIENT
  Age: 36 Year
  Sex: Female

DRUGS (3)
  1. DIVALPROEX SODIUM [Suspect]
     Indication: MANIA
     Dosage: 1000 MG (1000 MG, PER DAY)
  2. OLANZAPINE (UNKNOWN) [Suspect]
     Indication: MANIA
     Dosage: 10 MG (10 MG, PER DAY)
  3. DIAZEPAM (UNKNOWN) [Suspect]
     Indication: AGITATION
     Dosage: 30 MG (30 MG, PER DAY)

REACTIONS (2)
  - Drug interaction [None]
  - Encephalopathy [None]
